FAERS Safety Report 4835437-X (Version None)
Quarter: 2005Q4

REPORT INFORMATION
  Report Type: 
  Country: None (occurrence: None)
  Receive Date: 20051122
  Receipt Date: 20051122
  Transmission Date: 20060501
  Serious: Yes (Other)
  Sender: FDA-Public Use
  Company Number: None

PATIENT
  Age: 16 Year
  Sex: Male
  Weight: 78.0187 kg

DRUGS (2)
  1. RISPERIDONE [Suspect]
     Indication: SCHIZOAFFECTIVE DISORDER
     Dosage: 4 MG BEDTIME PO
     Route: 048
     Dates: start: 20050516, end: 20050812
  2. VENLAFAXINE XR 150 MG WYETH [Suspect]
     Indication: SCHIZOAFFECTIVE DISORDER
     Dosage: 150 MG MORNING PO
     Route: 048
     Dates: start: 20050512, end: 20050812

REACTIONS (3)
  - BLOOD THYROID STIMULATING HORMONE INCREASED [None]
  - GALACTORRHOEA [None]
  - HYPOTHYROIDISM [None]
